FAERS Safety Report 5488857-7 (Version None)
Quarter: 2007Q4

REPORT INFORMATION
  Report Type: 
  Country: None (occurrence: None)
  Receive Date: 20071016
  Receipt Date: 20071005
  Transmission Date: 20080405
  Serious: Yes (Other)
  Sender: FDA-Public Use
  Company Number: GXKR2007GB08632

PATIENT
  Age: 73 Year
  Sex: Male
  Weight: 65.4 kg

DRUGS (5)
  1. METFORMIN (NGX)(METFORMIN) UNKNOWN, 500MG [Suspect]
     Indication: DIABETES MELLITUS
     Dosage: 500 MG, BID,; 1000 MG, BID, ORAL
     Route: 048
     Dates: start: 20070824, end: 20070831
  2. ACETYLSALICYLIC ACID SRT [Concomitant]
  3. DILTIAZEM [Concomitant]
  4. GLICLAZIDE (GLICLAZIDE) [Concomitant]
  5. GTN (GLYCERYL TRINITRATE) [Concomitant]

REACTIONS (3)
  - PROTEIN URINE PRESENT [None]
  - URINE ALBUMIN/CREATININE RATIO INCREASED [None]
  - VASCULITIC RASH [None]
